FAERS Safety Report 17751727 (Version 2)
Quarter: 2021Q2

REPORT INFORMATION
  Report Type: Spontaneous
  Country: US (occurrence: US)
  Receive Date: 20200506
  Receipt Date: 20210505
  Transmission Date: 20210716
  Serious: Yes (Other)
  Sender: FDA-Public Use
  Company Number: US-TEVA-2020-US-1232516

PATIENT

DRUGS (6)
  1. VALSARTAN SOLCO [Suspect]
     Active Substance: VALSARTAN
     Indication: HYPERTENSION
     Route: 065
     Dates: start: 20170901, end: 20171001
  2. VALSARTAN SOLCO [Suspect]
     Active Substance: VALSARTAN
     Route: 065
     Dates: start: 20170930, end: 20171030
  3. VALSARTAN/HYDROCHLOROTHIAZIDE AUROBINDO [Suspect]
     Active Substance: HYDROCHLOROTHIAZIDE\VALSARTAN
     Indication: HYPERTENSION
     Route: 065
     Dates: start: 20170505, end: 20170912
  4. VALSARTAN/HYDROCHLOROTHIAZIDE AUROBINDO [Suspect]
     Active Substance: HYDROCHLOROTHIAZIDE\VALSARTAN
     Route: 065
     Dates: start: 20170901, end: 20171001
  5. VALSARTAN/HYDROCHLOROTHIAZIDE AUROBINDO [Suspect]
     Active Substance: HYDROCHLOROTHIAZIDE\VALSARTAN
     Route: 065
     Dates: start: 20171020, end: 20171119
  6. VALSARTAN SOLCO [Suspect]
     Active Substance: VALSARTAN
     Route: 065
     Dates: start: 20171102, end: 20180701

REACTIONS (1)
  - Colon cancer [Not Recovered/Not Resolved]
